FAERS Safety Report 6172841-4 (Version None)
Quarter: 2009Q2

REPORT INFORMATION
  Report Type: 
  Country: None (occurrence: None)
  Receive Date: 20090430
  Receipt Date: 20090423
  Transmission Date: 20091009
  Serious: Yes (Life-Threatening, Hospitalization)
  Sender: FDA-Public Use
  Company Number: GB-TYCO HEALTHCARE/MALLINCKRODT-T200900867

PATIENT

DRUGS (2)
  1. TECHNESCAN MAA [Suspect]
     Indication: VENTILATION/PERFUSION SCAN
     Dosage: 2.5 ML, SINGLE
     Route: 042
     Dates: start: 20090406, end: 20090406
  2. ULTRA-TECHNEKOW FM [Suspect]
     Indication: VENTILATION/PERFUSION SCAN
     Dosage: 50 MBQ, SINGLE
     Route: 042
     Dates: start: 20090406, end: 20090406

REACTIONS (2)
  - CARDIAC ARREST [None]
  - DYSPNOEA [None]
